FAERS Safety Report 5815550-0 (Version None)
Quarter: 2008Q3

REPORT INFORMATION
  Report Type: 
  Country: None (occurrence: None)
  Receive Date: 20080716
  Receipt Date: 20080701
  Transmission Date: 20090109
  Serious: Yes (Other)
  Sender: FDA-Public Use
  Company Number: 030043

PATIENT
  Age: 19 Year
  Sex: Female

DRUGS (1)
  1. NORETHINDRONE + ETHINYL ESTRADIOL 28 DAY(NORETHINDRONE, ETHINYLESTRADI [Suspect]
     Dosage: ORAL
     Route: 048

REACTIONS (9)
  - ALANINE AMINOTRANSFERASE INCREASED [None]
  - DYSPNOEA [None]
  - FALL [None]
  - INFLUENZA LIKE ILLNESS [None]
  - INSOMNIA [None]
  - PRESYNCOPE [None]
  - PRURITUS [None]
  - SYNCOPE [None]
  - TACHYCARDIA [None]
